FAERS Safety Report 5344468-5 (Version None)
Quarter: 2007Q2

REPORT INFORMATION
  Report Type: 
  Country: None (occurrence: None)
  Receive Date: 20070604
  Receipt Date: 20070523
  Transmission Date: 20071010
  Serious: Yes (Other)
  Sender: FDA-Public Use
  Company Number: FR-PFIZER INC-2007030944

PATIENT
  Sex: Male
  Weight: 76 kg

DRUGS (6)
  1. TAHOR [Suspect]
     Indication: CAROTID ARTERY OCCLUSION
     Route: 048
     Dates: start: 20050101
  2. TAHOR [Suspect]
     Indication: DYSLIPIDAEMIA
  3. KARVEA HCT [Concomitant]
  4. ASPIRIN [Concomitant]
     Dates: start: 20060101
  5. CLOPIDOGREL [Concomitant]
     Dates: start: 20070301
  6. ULTRACET [Concomitant]

REACTIONS (4)
  - BLOOD CREATINE PHOSPHOKINASE INCREASED [None]
  - HERNIA [None]
  - MUSCLE SPASMS [None]
  - MYALGIA [None]
